FAERS Safety Report 21902110 (Version 3)
Quarter: 2023Q2

REPORT INFORMATION
  Report Type: Spontaneous
  Country: ES (occurrence: ES)
  Receive Date: 20230124
  Receipt Date: 20230406
  Transmission Date: 20230722
  Serious: Yes (Other)
  Sender: FDA-Public Use
  Company Number: ES-002147023-NVSC2023ES011866

PATIENT
  Sex: Male

DRUGS (1)
  1. LUCENTIS [Suspect]
     Active Substance: RANIBIZUMAB
     Indication: Age-related macular degeneration
     Dosage: UNK (IN ONE EYE FOR MORE THAN 2 YEARS)
     Route: 065

REACTIONS (4)
  - Ocular vasculitis [Unknown]
  - Age-related macular degeneration [Unknown]
  - Disease progression [Unknown]
  - Uveitis [Unknown]
